FAERS Safety Report 5506882-4 (Version None)
Quarter: 2007Q4

REPORT INFORMATION
  Report Type: 
  Country: None (occurrence: None)
  Receive Date: 20071101
  Receipt Date: 20071023
  Transmission Date: 20080405
  Serious: Yes (Hospitalization)
  Sender: FDA-Public Use
  Company Number: 2007BI019886

PATIENT
  Age: 39 Year
  Sex: Male

DRUGS (5)
  1. NATALIZUMAB [Suspect]
     Indication: DRUG USE FOR UNKNOWN INDICATION
     Dosage: 300 MG;QM;IV
     Route: 042
     Dates: start: 20070118
  2. AVONEX [Concomitant]
  3. ZOLOFT [Concomitant]
  4. LYRICA [Concomitant]
  5. CARBAMAZEPINE [Concomitant]

REACTIONS (3)
  - CHEST PAIN [None]
  - DYSPNOEA [None]
  - PULMONARY EMBOLISM [None]
